FAERS Safety Report 7052526-2 (Version None)
Quarter: 2010Q4

REPORT INFORMATION
  Report Type: 
  Country: None (occurrence: None)
  Receive Date: 20101014
  Receipt Date: 20100930
  Transmission Date: 20110411
  Serious: Yes (Other)
  Sender: FDA-Public Use
  Company Number: 019780

PATIENT
  Age: 16 Year
  Sex: Female

DRUGS (7)
  1. KEPPRA [Suspect]
     Indication: EPILEPSY
     Dosage: 1000 MG BID
  2. FOLIC ACID [Concomitant]
  3. ZONEGRAN [Concomitant]
  4. TEGRETOL [Concomitant]
  5. STRATTERA [Concomitant]
  6. OSCAL D [Concomitant]
  7. ZOFRAN [Concomitant]

REACTIONS (3)
  - DRUG EXPOSURE DURING PREGNANCY [None]
  - NAUSEA [None]
  - PREMATURE LABOUR [None]
